FAERS Safety Report 12990394 (Version 1)
Quarter: 2016Q4

REPORT INFORMATION
  Report Type: Spontaneous
  Country: FR (occurrence: FR)
  Receive Date: 20161201
  Receipt Date: 20161201
  Transmission Date: 20170207
  Serious: Yes (Hospitalization)
  Sender: FDA-Public Use
  Company Number: FR-PFIZER INC-2016546534

PATIENT
  Age: 55 Year
  Sex: Male

DRUGS (7)
  1. SUTENT [Suspect]
     Active Substance: SUNITINIB MALATE
     Indication: RENAL CANCER
     Dosage: 50 MG, DAILY 2 WEEKS OVER 3
     Route: 048
     Dates: end: 201611
  2. LEVOTHYROX [Concomitant]
     Active Substance: LEVOTHYROXINE
     Dosage: 125 UG, DAILY AT 8:00 AM
  3. PARIET [Concomitant]
     Active Substance: RABEPRAZOLE SODIUM
     Dosage: 20 MG, DAILY AT 8:00 AM
  4. GARDENAL /00023201/ [Concomitant]
     Active Substance: PHENOBARBITAL
     Dosage: 50 MG, DAILY AT 7:00 PM
  5. LOXEN L P [Concomitant]
     Active Substance: NICARDIPINE HYDROCHLORIDE
     Dosage: 50 MG, DAILY AT 7:00 PM
     Dates: end: 201611
  6. OXYCONTIN [Concomitant]
     Active Substance: OXYCODONE HYDROCHLORIDE
     Dosage: 30 MG, DAILY AT 7:00 PM
  7. LOXEN /00639802/ [Concomitant]
     Active Substance: NICARDIPINE
     Dosage: 20 MG, DAILY AT 8:00 AM
     Dates: end: 201611

REACTIONS (1)
  - Ischaemic stroke [Recovering/Resolving]

NARRATIVE: CASE EVENT DATE: 20161101
